FAERS Safety Report 7005395-0 (Version None)
Quarter: 2010Q3

REPORT INFORMATION
  Report Type: 
  Country: None (occurrence: None)
  Receive Date: 20100921
  Receipt Date: 20100910
  Transmission Date: 20110219
  Serious: Yes (Hospitalization, Other)
  Sender: FDA-Public Use
  Company Number: US-ROCHE-707174

PATIENT
  Sex: Male
  Weight: 83.9 kg

DRUGS (6)
  1. ACCUTANE [Suspect]
     Indication: ACNE
     Route: 048
     Dates: start: 20031101, end: 20040201
  2. ACCUTANE [Suspect]
     Dosage: STRENGTH: 40 MG AND 20 MG
     Route: 048
     Dates: start: 20050201
  3. ACCUTANE [Suspect]
     Dosage: 20 MG IN  MORNING; 40 MG AT NIGHT
     Route: 048
     Dates: start: 20050301, end: 20050701
  4. ADVAIR DISKUS 100/50 [Concomitant]
     Indication: ASTHMA
  5. METHYLPREDNISOLONE [Concomitant]
  6. ALBUTEROL [Concomitant]
     Indication: ASTHMA

REACTIONS (6)
  - CROHN'S DISEASE [None]
  - DEPRESSION [None]
  - DIVERTICULUM INTESTINAL [None]
  - INFLAMMATORY BOWEL DISEASE [None]
  - POLYP [None]
  - SMALL INTESTINAL OBSTRUCTION [None]
